FAERS Safety Report 6959346-5 (Version None)
Quarter: 2010Q3

REPORT INFORMATION
  Report Type: 
  Country: None (occurrence: None)
  Receive Date: 20100831
  Receipt Date: 20100831
  Transmission Date: 20110219
  Serious: Yes (Other)
  Sender: FDA-Public Use
  Company Number: None

PATIENT
  Sex: Female
  Weight: 81.8 kg

DRUGS (16)
  1. VENLAFAXINE HCL EXTENDED-RELEASE [Suspect]
     Indication: MAJOR DEPRESSION
     Dosage: 150MG CAPSULE 2 CAPSULES BID ORAL
     Route: 048
     Dates: start: 20100715, end: 20100803
  2. VERAPAMIL [Concomitant]
  3. METOPROLOL TARTRATE [Concomitant]
  4. COUMADIN [Concomitant]
  5. ALLEGRA [Concomitant]
  6. PREVACID [Concomitant]
  7. GABAPENTIN [Concomitant]
  8. LORTAB [Concomitant]
  9. ADDERALL 10 [Concomitant]
  10. CITALOPRAM HYDROBROMIDE [Concomitant]
  11. PROVIGIL [Concomitant]
  12. FLEXERIL [Concomitant]
  13. GEODON [Concomitant]
  14. BETHANACHOL [Concomitant]
  15. REQUIP [Concomitant]
  16. LIBRIUM [Concomitant]

REACTIONS (2)
  - DEPRESSED MOOD [None]
  - PRODUCT SUBSTITUTION ISSUE [None]
